FAERS Safety Report 6048746-6 (Version None)
Quarter: 2009Q1

REPORT INFORMATION
  Report Type: 
  Country: None (occurrence: None)
  Receive Date: 20090123
  Receipt Date: 20090114
  Transmission Date: 20090719
  Serious: Yes (Hospitalization)
  Sender: FDA-Public Use
  Company Number: JP-ROCHE-604877

PATIENT
  Sex: Female

DRUGS (19)
  1. VALGANCICLOVIR HCL [Suspect]
     Indication: CYTOMEGALOVIRUS INFECTION
     Dosage: DRUG: VALIXA (VALGANCICLOVIR HYDROCHLORIDE)
     Route: 048
     Dates: start: 20080926, end: 20081017
  2. TOCILIZUMAB [Suspect]
     Indication: RHEUMATOID ARTHRITIS
     Route: 041
     Dates: start: 20080924, end: 20080924
  3. TOCILIZUMAB [Suspect]
     Route: 041
     Dates: start: 20081020, end: 20081020
  4. TOCILIZUMAB [Suspect]
     Route: 041
     Dates: start: 20081117, end: 20081117
  5. TOCILIZUMAB [Suspect]
     Route: 041
     Dates: start: 20081204, end: 20081204
  6. TOCILIZUMAB [Suspect]
     Route: 041
     Dates: start: 20081218
  7. PREDONINE [Concomitant]
     Route: 048
     Dates: start: 20080606
  8. FUNGIZONE [Concomitant]
     Dosage: ROUTE: RESPIRATORY (INHALATION)
     Route: 055
     Dates: start: 20080607
  9. LENDORMIN [Concomitant]
     Route: 048
     Dates: start: 20080610
  10. GASTROM [Concomitant]
     Dosage: DRUG: GASTROM (ECABET SODIUM)
     Route: 048
     Dates: start: 20080625
  11. ISCOTIN [Concomitant]
     Dosage: FORM: ORAL FORMULATION (NOT OTHERWISE SPECIFIED)
     Route: 048
     Dates: start: 20080711
  12. PYDOXAL [Concomitant]
     Route: 048
     Dates: start: 20080711
  13. FOLIAMIN [Concomitant]
     Dosage: FORM: ORAL FORMULATION (NOT OTHERWISE SPECIFIED)
     Route: 048
     Dates: start: 20080712
  14. BENET [Concomitant]
     Dosage: DRUG: BENET (SODIUM RISEDRONATE HYDRATE)
     Route: 048
     Dates: start: 20080714
  15. BASEN [Concomitant]
     Route: 048
     Dates: start: 20080717
  16. BENAMBAX [Concomitant]
     Dosage: DRUG: BENAMBAX (PENTAMIDINE ISETIONATE), ROUTE: RESPIRATORY (INHALATION)
     Route: 055
     Dates: start: 20080722
  17. CYANOCOBALAMIN [Concomitant]
     Dosage: FORM: ORAL FORMULATION (NOT OTHERWISE SPECIFIED)
     Route: 048
     Dates: start: 20080724
  18. NEORAL [Concomitant]
     Route: 048
     Dates: start: 20080807
  19. AMARYL [Concomitant]
     Route: 048
     Dates: start: 20080825

REACTIONS (3)
  - HYPERLIPIDAEMIA [None]
  - INTERSTITIAL LUNG DISEASE [None]
  - LIVER DISORDER [None]
